FAERS Safety Report 4701074-0 (Version None)
Quarter: 2005Q2

REPORT INFORMATION
  Report Type: 
  Country: None (occurrence: None)
  Receive Date: 20050623
  Receipt Date: 20050615
  Transmission Date: 20051028
  Serious: Yes (Hospitalization)
  Sender: FDA-Public Use
  Company Number: 2005062475

PATIENT
  Age: 75 Year
  Sex: 0
  Weight: 78.9259 kg

DRUGS (4)
  1. DAYPRO [Suspect]
     Indication: ARTHRITIS
     Dates: start: 19990101
  2. CELEBREX [Suspect]
     Indication: ARTHRITIS
     Dosage: 200 MG (200 MG 1 IN 1 D) ORAL
     Route: 048
  3. BEXTRA [Suspect]
     Indication: ARTHRITIS
     Dosage: 10 MG (10 MG 1 IN 1 D) ORAL
     Route: 048
     Dates: start: 20041126
  4. VIOXX [Suspect]
     Indication: ARTHRITIS

REACTIONS (5)
  - CHEST PAIN [None]
  - DRUG INEFFECTIVE [None]
  - DYSPNOEA [None]
  - KNEE ARTHROPLASTY [None]
  - PULMONARY EMBOLISM [None]
